FAERS Safety Report 9990416 (Version 1)
Quarter: 2014Q1

REPORT INFORMATION
  Report Type: Spontaneous
  Country: GB (occurrence: GB)
  Receive Date: 20140310
  Receipt Date: 20140310
  Transmission Date: 20141002
  Serious: Yes (Other)
  Sender: FDA-Public Use
  Company Number: GB-DRREDDYS-GER/UKI/14/0038715

PATIENT
  Sex: 0

DRUGS (2)
  1. LETROZOLE [Suspect]
     Indication: BREAST CANCER
  2. TAMOXIFEN [Suspect]
     Indication: PRODUCT USED FOR UNKNOWN INDICATION

REACTIONS (5)
  - Breast cancer [Unknown]
  - Metastases to lung [Unknown]
  - Malignant neoplasm progression [Unknown]
  - Metastases to skin [Unknown]
  - Poor quality sleep [Unknown]
